FAERS Safety Report 18098469 (Version 3)
Quarter: 2020Q4

REPORT INFORMATION
  Report Type: Spontaneous
  Country: IL (occurrence: IL)
  Receive Date: 20200731
  Receipt Date: 20201013
  Transmission Date: 20210113
  Serious: Yes (Hospitalization, Disabling, Other)
  Sender: FDA-Public Use
  Company Number: IL-PFIZER INC-2020286945

PATIENT
  Age: 15 Year
  Sex: Female
  Weight: 47.7 kg

DRUGS (2)
  1. GENOTROPIN [Suspect]
     Active Substance: SOMATROPIN
     Dosage: 1.5 MG, DAILY
     Route: 058
     Dates: start: 20131104, end: 20180228
  2. GENOTROPIN [Suspect]
     Active Substance: SOMATROPIN
     Indication: GROWTH HORMONE DEFICIENCY
     Dosage: 1.4 OR 1.6 MG DAILY INTERMITTENTLY
     Dates: start: 201311, end: 201802

REACTIONS (6)
  - Neoplasm malignant [Not Recovered/Not Resolved]
  - Ovarian germ cell endodermal sinus tumour [Not Recovered/Not Resolved]
  - Alpha 1 foetoprotein increased [Unknown]
  - Ovarian germ cell tumour mixed [Not Recovered/Not Resolved]
  - Carbohydrate antigen 125 increased [Unknown]
  - Teratoma [Not Recovered/Not Resolved]

NARRATIVE: CASE EVENT DATE: 20200420
